FAERS Safety Report 24082981 (Version 2)
Quarter: 2024Q3

REPORT INFORMATION
  Report Type: Spontaneous
  Country: US (occurrence: US)
  Receive Date: 20240712
  Receipt Date: 20240812
  Transmission Date: 20241017
  Serious: No
  Sender: ROCHE
  Company Number: US-ROCHE-10000023406

PATIENT
  Age: 11 Year
  Sex: Male
  Weight: 54.43 kg

DRUGS (8)
  1. XOLAIR [Suspect]
     Active Substance: OMALIZUMAB
     Indication: Pruritus
     Dosage: 300MG/2ML ONE INJECTION
     Route: 058
     Dates: start: 202401
  2. XOLAIR [Suspect]
     Active Substance: OMALIZUMAB
  3. COENZYME Q10 [Concomitant]
     Active Substance: DIETARY SUPPLEMENT\UBIDECARENONE
     Route: 048
     Dates: start: 2019
  4. CLONIDINE [Concomitant]
     Active Substance: CLONIDINE
     Indication: Pruritus
     Dosage: AT NIGHT
     Route: 048
     Dates: start: 2019
  5. ZYRTEC [Concomitant]
     Active Substance: CETIRIZINE HYDROCHLORIDE
     Indication: Pruritus
     Dosage: TWICE A DAY
     Route: 048
     Dates: start: 202311
  6. ZYRTEC [Concomitant]
     Active Substance: CETIRIZINE HYDROCHLORIDE
     Route: 048
     Dates: start: 2020
  7. MAGNESIUM CITRATE [Concomitant]
     Active Substance: MAGNESIUM CITRATE
     Dosage: TWICE  A DAY
     Route: 048
     Dates: start: 202308
  8. HYDROXYZINE [Concomitant]
     Active Substance: HYDROXYZINE HYDROCHLORIDE
     Indication: Pruritus
     Dosage: AS NEEDED
     Route: 048
     Dates: start: 2018

REACTIONS (5)
  - Off label use [Unknown]
  - Device defective [Unknown]
  - No adverse event [Unknown]
  - Product dose omission issue [Unknown]
  - Product complaint [Unknown]

NARRATIVE: CASE EVENT DATE: 20240101
